FAERS Safety Report 7447580-X (Version None)
Quarter: 2011Q2

REPORT INFORMATION
  Report Type: 
  Country: None (occurrence: None)
  Receive Date: 20110429
  Receipt Date: 20110415
  Transmission Date: 20111010
  Serious: Yes (Hospitalization)
  Sender: FDA-Public Use
  Company Number: NP-WATSON-2011-05744

PATIENT
  Age: 27 Year
  Sex: Male

DRUGS (4)
  1. NIFEDIPINE [Concomitant]
     Indication: PRODUCT USED FOR UNKNOWN INDICATION
  2. DEXAMETHASONE ACETATE (WATSON LABORATORIES) [Suspect]
     Indication: MOUNTAIN SICKNESS ACUTE
     Dosage: 1 MG, BID INJECTION
     Dates: start: 20090401
  3. ACETAZOLAMIDE [Concomitant]
     Indication: PRODUCT USED FOR UNKNOWN INDICATION
  4. DEXAMETHASONE (WATSON LABORATORIES) [Suspect]
     Indication: MOUNTAIN SICKNESS ACUTE
     Dosage: 4 MG, TID
     Route: 065
     Dates: start: 20090401

REACTIONS (7)
  - MENTAL STATUS CHANGES [None]
  - OSTEONECROSIS [None]
  - ANAEMIA [None]
  - DRUG WITHDRAWAL SYNDROME [None]
  - TOXICITY TO VARIOUS AGENTS [None]
  - GASTROINTESTINAL HAEMORRHAGE [None]
  - DERMATITIS [None]
